FAERS Safety Report 25968959 (Version 1)
Quarter: 2025Q4

REPORT INFORMATION
  Report Type: Spontaneous
  Country: US (occurrence: None)
  Receive Date: 20251027
  Receipt Date: 20251027
  Transmission Date: 20260117
  Serious: Yes (Hospitalization)
  Sender: FDA-CTU
  Company Number: None

PATIENT
  Age: 56 Year
  Sex: Female
  Weight: 74.8 kg

DRUGS (12)
  1. MAVYRET [Suspect]
     Active Substance: GLECAPREVIR\PIBRENTASVIR
     Indication: Chronic hepatitis C
     Dosage: FREQUENCY : DAILY;?
     Route: 048
     Dates: start: 20251001, end: 20251026
  2. AMLODIPINE [Concomitant]
     Active Substance: AMLODIPINE BESYLATE
  3. ATORVASTATIN [Concomitant]
     Active Substance: ATORVASTATIN
  4. baqsimi 3mg nasal [Concomitant]
  5. insulin aspart 100u/ml [Concomitant]
  6. insulin glargine 100u/ml [Concomitant]
  7. mirapex 0.125mg [Concomitant]
  8. MIRTAZAPINE [Concomitant]
     Active Substance: MIRTAZAPINE
  9. IBUPROFEN [Concomitant]
     Active Substance: IBUPROFEN
  10. OMEPRAZOLE [Concomitant]
     Active Substance: OMEPRAZOLE
  11. QUETIAPINE [Concomitant]
     Active Substance: QUETIAPINE
  12. CHOLECALCIFEROL [Concomitant]
     Active Substance: CHOLECALCIFEROL

REACTIONS (2)
  - Pruritus [None]
  - Skin abrasion [None]

NARRATIVE: CASE EVENT DATE: 20251026
